FAERS Safety Report 16561347 (Version 1)
Quarter: 2019Q3

REPORT INFORMATION
  Report Type: Spontaneous
  Country: US (occurrence: US)
  Receive Date: 20190711
  Receipt Date: 20190711
  Transmission Date: 20191004
  Serious: Yes (Other)
  Sender: FDA-Public Use
  Company Number: US-GILEAD-2019-0417158

PATIENT
  Age: 26 Year
  Sex: Female

DRUGS (5)
  1. CYCLOPHOSPHAMIDE. [Suspect]
     Active Substance: CYCLOPHOSPHAMIDE
     Indication: BONE MARROW CONDITIONING REGIMEN
     Route: 065
  2. FAMCICLOVIR. [Concomitant]
     Active Substance: FAMCICLOVIR
  3. ATOVAQUONE. [Concomitant]
     Active Substance: ATOVAQUONE
  4. YESCARTA [Suspect]
     Active Substance: AXICABTAGENE CILOLEUCEL
     Indication: PRIMARY MEDIASTINAL LARGE B-CELL LYMPHOMA REFRACTORY
     Route: 042
  5. FLUCONAZOLE. [Concomitant]
     Active Substance: FLUCONAZOLE

REACTIONS (2)
  - Cytokine release syndrome [Unknown]
  - CAR T-cell-related encephalopathy syndrome [Recovered/Resolved]
